FAERS Safety Report 4824539-X (Version None)
Quarter: 2005Q4

REPORT INFORMATION
  Report Type: 
  Country: None (occurrence: None)
  Receive Date: 20051108
  Receipt Date: 20051108
  Transmission Date: 20060501
  Serious: Yes (Life-Threatening, Hospitalization)
  Sender: FDA-Public Use
  Company Number: None

PATIENT
  Age: 37 Year
  Sex: Female
  Weight: 42.1845 kg

DRUGS (4)
  1. INFLIXIMAB (CENTOCOR) [Suspect]
     Indication: CROHN'S DISEASE
     Dosage: 5 MG/KG EVERY 8 WEEKS IV
     Route: 042
     Dates: start: 20011201, end: 20050901
  2. BUDESONIDE [Concomitant]
  3. MESOLOMINE [Concomitant]
  4. MIRTAZOPINE [Concomitant]

REACTIONS (3)
  - INTESTINAL PERFORATION [None]
  - PERIRECTAL ABSCESS [None]
  - TUBERCULOSIS [None]
